FAERS Safety Report 8534068-8 (Version None)
Quarter: 2012Q3

REPORT INFORMATION
  Report Type: 
  Country: None (occurrence: None)
  Receive Date: 20120724
  Receipt Date: 20120710
  Transmission Date: 20120928
  Serious: No
  Sender: FDA-Public Use
  Company Number: US-ASTRAZENECA-2012SE47346

PATIENT
  Age: 91 Year

DRUGS (1)
  1. TOPROL-XL [Suspect]
     Route: 048

REACTIONS (4)
  - MUSCULAR WEAKNESS [None]
  - JOINT SWELLING [None]
  - DIZZINESS [None]
  - OEDEMA PERIPHERAL [None]
